FAERS Safety Report 5275411-5 (Version None)
Quarter: 2007Q1

REPORT INFORMATION
  Report Type: 
  Country: None (occurrence: None)
  Receive Date: 20070326
  Receipt Date: 20070313
  Transmission Date: 20070707
  Serious: Yes (Hospitalization)
  Sender: FDA-Public Use
  Company Number: US-JNJFOC-20060604706

PATIENT
  Sex: Male
  Weight: 52.62 kg

DRUGS (7)
  1. PREZISTA [Suspect]
     Route: 048
     Dates: start: 20060427, end: 20060620
  2. PREZISTA [Suspect]
     Indication: HIV INFECTION
     Dosage: TEMPORARY STOP
     Route: 048
     Dates: start: 20060427, end: 20060620
  3. NORVIR [Suspect]
     Indication: HIV INFECTION
     Route: 048
     Dates: start: 20060427, end: 20060620
  4. FUZEON [Concomitant]
     Indication: HIV INFECTION
     Route: 058
     Dates: start: 20050106, end: 20060620
  5. TRUVADA [Concomitant]
     Indication: HIV INFECTION
     Route: 048
     Dates: start: 20060413, end: 20060620
  6. ITRACONAZOLE [Concomitant]
     Indication: OESOPHAGEAL CANDIDIASIS
     Dosage: STARTED PRE-TRIAL
     Route: 048
  7. ATOVAQUONE [Concomitant]
     Indication: ANTIFUNGAL PROPHYLAXIS
     Dosage: STARTED PRE-TRIAL
     Route: 048

REACTIONS (1)
  - HEPATITIS [None]
